FAERS Safety Report 8919839 (Version 1)
Quarter: 2012Q4

REPORT INFORMATION
  Report Type: 
  Country: US (occurrence: US)
  Receive Date: 20121121
  Receipt Date: 20121121
  Transmission Date: 20130627
  Serious: Yes (Other)
  Sender: FDA-Public Use
  Company Number: US-BAYER-2012-117590

PATIENT
  Age: 58 Year
  Sex: Female
  Weight: 63 kg

DRUGS (7)
  1. DOMEBORO POWDER PACKETS [Suspect]
     Indication: HEMORRHOIDS
     Dosage: 2 DF, BID
     Route: 061
     Dates: start: 201210
  2. VITAMIN B12 (CYANOCOBALAMIN AND DERIVATIVES) [Concomitant]
  3. METFORMIN [Concomitant]
  4. HUMALOG [Concomitant]
  5. LANTUS [Concomitant]
  6. LISINOPRIL [Concomitant]
  7. LABETALOL [Concomitant]

REACTIONS (15)
  - Pruritus [Not Recovered/Not Resolved]
  - Musculoskeletal pain [Not Recovered/Not Resolved]
  - Insomnia [Not Recovered/Not Resolved]
  - Accidental exposure to product [None]
  - Therapeutic response unexpected [None]
  - Wrong technique in drug usage process [None]
  - Off label use [Not Recovered/Not Resolved]
  - Chemical injury [None]
  - Paraesthesia [None]
  - Vulvovaginal swelling [None]
  - Vaginal mucosal blistering [None]
  - Erythema [None]
  - Skin irritation [None]
  - Skin exfoliation [None]
  - Dermatitis [None]
